FAERS Safety Report 18165831 (Version 1)
Quarter: 2020Q3

REPORT INFORMATION
  Report Type: Spontaneous
  Country: DE (occurrence: DE)
  Receive Date: 20200818
  Receipt Date: 20200818
  Transmission Date: 20201103
  Serious: Yes (Hospitalization)
  Sender: FDA-Public Use
  Company Number: DE-MYLANLABS-2020M1071441

PATIENT
  Age: 81 Year
  Sex: Male

DRUGS (13)
  1. RAMIPRIL. [Suspect]
     Active Substance: RAMIPRIL
     Indication: PRODUCT USED FOR UNKNOWN INDICATION
     Dosage: 5 MILLIGRAM, BID
     Route: 048
  2. TAMSULOSIN [Concomitant]
     Active Substance: TAMSULOSIN
     Dosage: 0.4 MILLIGRAM, QD
     Route: 048
  3. PANTOPRAZOLE [Suspect]
     Active Substance: PANTOPRAZOLE
     Indication: PRODUCT USED FOR UNKNOWN INDICATION
     Dosage: QD
     Route: 048
  4. LEVOTHYROXIN [Concomitant]
     Active Substance: LEVOTHYROXINE
     Dosage: 50 MICROGRAM, QD
     Route: 048
  5. AMLODIPINE [Concomitant]
     Active Substance: AMLODIPINE BESYLATE
     Dosage: 5 MILLIGRAM, QD
     Route: 048
  6. DULCOLAX                           /00362801/ [Concomitant]
     Dosage: 10 GTT DROPS, QD
     Route: 048
  7. ALLOPURINOL. [Concomitant]
     Active Substance: ALLOPURINOL
     Dosage: 100 MILLIGRAM, QD
     Route: 048
  8. SIMVASTATIN. [Concomitant]
     Active Substance: SIMVASTATIN
     Dosage: 20 MILLIGRAM, QD
     Route: 048
  9. INDAPAMID [Concomitant]
     Active Substance: INDAPAMIDE
     Dosage: 2.5 MILLIGRAM, QD
     Route: 048
  10. URAPIDIL [Concomitant]
     Active Substance: URAPIDIL
     Dosage: 30 MILLIGRAM, QD
     Route: 048
  11. FINASTERID [Concomitant]
     Active Substance: FINASTERIDE
     Dosage: 5 MILLIGRAM, QD
     Route: 048
  12. MACROGOL W/POTASSIUM CHLORIDE/SODIU/06401201/ [Concomitant]
     Dosage: QD
     Route: 048
  13. BISOPROLOL [Concomitant]
     Active Substance: BISOPROLOL
     Dosage: 5 MILLIGRAM, QD
     Route: 048

REACTIONS (4)
  - Lip swelling [Unknown]
  - General physical health deterioration [Unknown]
  - Skin irritation [Unknown]
  - Face oedema [Unknown]
